FAERS Safety Report 6193119-9 (Version None)
Quarter: 2009Q2

REPORT INFORMATION
  Report Type: 
  Country: None (occurrence: None)
  Receive Date: 20090514
  Receipt Date: 20090514
  Transmission Date: 20091009
  Serious: Yes (Other)
  Sender: FDA-Public Use
  Company Number: None

PATIENT
  Age: 25 Year
  Sex: Female
  Weight: 54.4316 kg

DRUGS (1)
  1. MICROGESTIN FE 1.5/30 [Suspect]
     Indication: DYSMENORRHOEA
     Dosage: 1 PILL ONCE DAILY
     Dates: start: 20070901, end: 20080315

REACTIONS (5)
  - ANXIETY [None]
  - DECREASED INTEREST [None]
  - DEPRESSION [None]
  - MENTAL DISORDER [None]
  - PANIC ATTACK [None]
